FAERS Safety Report 6112226-X (Version None)
Quarter: 2009Q1

REPORT INFORMATION
  Report Type: 
  Country: None (occurrence: None)
  Receive Date: 20090310
  Receipt Date: 20090227
  Transmission Date: 20090719
  Serious: Yes (Hospitalization, Other)
  Sender: FDA-Public Use
  Company Number: 2005JP001916

PATIENT
  Age: 31 Year
  Sex: Female
  Weight: 37.9 kg

DRUGS (6)
  1. PROGRAF [Suspect]
     Indication: RENAL TRANSPLANT
     Dosage: 2.50 MG, BID, ORAL
     Route: 048
     Dates: start: 20050204, end: 20050209
  2. PROGRAF [Suspect]
     Indication: RENAL TRANSPLANT
     Dosage: 1.5 ML, CONTINOUS, IV DRIP
     Route: 041
     Dates: start: 20050210, end: 20050216
  3. SIMULECT [Concomitant]
  4. SPANIDIN (GUSPERIMUS HYDROCHLORIDE) INJECTION [Concomitant]
  5. CELLCEPT (MYCOPHENOLATE MOFETIL) CAPSULE [Concomitant]
  6. PREDNISOLONE [Concomitant]

REACTIONS (18)
  - ANASTOMOTIC LEAK [None]
  - ASCITES [None]
  - BONE MARROW FAILURE [None]
  - CONTINUOUS HAEMODIAFILTRATION [None]
  - DRUG INTERACTION [None]
  - DRUG TOXICITY [None]
  - ENDOTHELIAL DYSFUNCTION [None]
  - HAEMOLYSIS [None]
  - HAEMORRHAGE [None]
  - INFECTION [None]
  - PLEURAL EFFUSION [None]
  - POST PROCEDURAL COMPLICATION [None]
  - RENAL HAEMATOMA [None]
  - RETROPERITONEAL ABSCESS [None]
  - RETROPERITONEAL HAEMATOMA [None]
  - STRESS [None]
  - THROMBOTIC MICROANGIOPATHY [None]
  - URETERAL NECROSIS [None]
